FAERS Safety Report 6647244-6 (Version None)
Quarter: 2010Q1

REPORT INFORMATION
  Report Type: 
  Country: None (occurrence: None)
  Receive Date: 20100323
  Receipt Date: 20100316
  Transmission Date: 20100710
  Serious: Yes (Other)
  Sender: FDA-Public Use
  Company Number: A0850455A

PATIENT
  Sex: Female

DRUGS (2)
  1. LOVAZA [Suspect]
     Route: 048
  2. ASACOL [Suspect]

REACTIONS (1)
  - HEPATIC ENZYME INCREASED [None]
